FAERS Safety Report 22993313 (Version 2)
Quarter: 2023Q4

REPORT INFORMATION
  Report Type: Report from Study
  Country: MX (occurrence: MX)
  Receive Date: 20230927
  Receipt Date: 20231006
  Transmission Date: 20240110
  Serious: Yes (Other)
  Sender: FDA-Public Use
  Company Number: MX-JNJFOC-20221130561

PATIENT
  Age: 51 Year
  Sex: Female
  Weight: 60 kg

DRUGS (4)
  1. SIMPONI [Suspect]
     Active Substance: GOLIMUMAB
     Indication: Axial spondyloarthritis
     Route: 058
     Dates: start: 2022
  2. SIMPONI [Suspect]
     Active Substance: GOLIMUMAB
     Indication: Ankylosing spondylitis
     Route: 058
     Dates: start: 2022
  3. SIMPONI [Suspect]
     Active Substance: GOLIMUMAB
     Dosage: IN 2021 (AROUND JULY OR OCTOBER) SHE STARTED HER TREATMENT WITH THE BIOLOGICAL SIMPONI
     Route: 058
     Dates: start: 20210723
  4. SIMPONI [Suspect]
     Active Substance: GOLIMUMAB
     Route: 058

REACTIONS (12)
  - Peritonitis [Unknown]
  - Pain [Unknown]
  - Oral neoplasm [Unknown]
  - Blood immunoglobulin A increased [Unknown]
  - Abscess oral [Unknown]
  - Decreased immune responsiveness [Unknown]
  - SARS-CoV-2 test positive [Unknown]
  - Eye infection [Unknown]
  - Skin discolouration [Unknown]
  - Nasopharyngitis [Unknown]
  - Therapeutic product effect decreased [Unknown]
  - Off label use [Unknown]

NARRATIVE: CASE EVENT DATE: 20220101
